FAERS Safety Report 4270874-6 (Version None)
Quarter: 2004Q1

REPORT INFORMATION
  Report Type: 
  Country: None (occurrence: None)
  Receive Date: 20040113
  Receipt Date: 20040105
  Transmission Date: 20041129
  Serious: Yes (Hospitalization)
  Sender: FDA-Public Use
  Company Number: 2004193228FR

PATIENT
  Age: 51 Year
  Sex: Female
  Weight: 50 kg

DRUGS (1)
  1. SOLU-MEDROL [Suspect]
     Indication: MULTIPLE SCLEROSIS
     Dosage: 1 G, SINGLE, IV
     Route: 042
     Dates: start: 20031202, end: 20031202

REACTIONS (3)
  - COUGH [None]
  - PRURITUS [None]
  - RASH ERYTHEMATOUS [None]
